FAERS Safety Report 7466428-0 (Version None)
Quarter: 2011Q2

REPORT INFORMATION
  Report Type: 
  Country: None (occurrence: None)
  Receive Date: 20110509
  Receipt Date: 20100726
  Transmission Date: 20111010
  Serious: No
  Sender: FDA-Public Use
  Company Number: US-ALEXION-A201000881

PATIENT
  Sex: Male

DRUGS (10)
  1. CITRACAL [Concomitant]
     Dosage: UNK
  2. PREDNISONE [Concomitant]
     Dosage: UNK
  3. LOPERAMIDE [Concomitant]
     Indication: CROHN'S DISEASE
     Dosage: UNK
  4. SOLIRIS [Suspect]
     Indication: PAROXYSMAL NOCTURNAL HAEMOGLOBINURIA
     Dosage: 1500 MG, Q2W
     Route: 042
     Dates: start: 20070101
  5. CANASA [Concomitant]
     Indication: CROHN'S DISEASE
     Dosage: UNK
  6. WELCHOL [Concomitant]
     Dosage: UNK
  7. ASACOL [Concomitant]
     Indication: CROHN'S DISEASE
     Dosage: UNK
  8. EFFEXOR XR [Concomitant]
     Dosage: UNK
  9. HUMIRA [Concomitant]
     Dosage: UNK
  10. MULTI-VITAMINS [Concomitant]
     Dosage: UNK

REACTIONS (6)
  - VOMITING [None]
  - HEADACHE [None]
  - HAEMOGLOBINURIA [None]
  - NAUSEA [None]
  - INFLUENZA [None]
  - PYREXIA [None]
